FAERS Safety Report 14762453 (Version 1)
Quarter: 2018Q2

REPORT INFORMATION
  Report Type: Spontaneous
  Country: GB (occurrence: GB)
  Receive Date: 20180416
  Receipt Date: 20180416
  Transmission Date: 20180711
  Serious: Yes (Other)
  Sender: FDA-Public Use
  Company Number: GB-IBIGEN-2018.03860

PATIENT
  Age: 83 Year
  Sex: Female

DRUGS (3)
  1. NIFEDIPINE. [Concomitant]
     Active Substance: NIFEDIPINE
     Indication: HYPERTENSION
  2. PIPERACILLIN AND TAZOBACTAM [Suspect]
     Active Substance: PIPERACILLIN SODIUM\TAZOBACTAM SODIUM
  3. FLUCLOXACILLIN [Suspect]
     Active Substance: FLUCLOXACILLIN
     Indication: PROPHYLAXIS
     Dosage: IN TOTAL??????
     Route: 042

REACTIONS (2)
  - Acute generalised exanthematous pustulosis [Recovered/Resolved with Sequelae]
  - Acute kidney injury [Recovered/Resolved]
